FAERS Safety Report 4497330-4 (Version None)
Quarter: 2004Q4

REPORT INFORMATION
  Report Type: 
  Country: None (occurrence: None)
  Receive Date: 20041108
  Receipt Date: 20040623
  Transmission Date: 20050328
  Serious: Yes (Hospitalization)
  Sender: FDA-Public Use
  Company Number: USA040670960

PATIENT
  Sex: Female
  Weight: 75 kg

DRUGS (1)
  1. PROZAC [Suspect]
     Indication: MAJOR DEPRESSION

REACTIONS (3)
  - ANOREXIA [None]
  - DEHYDRATION [None]
  - WEIGHT DECREASED [None]
